FAERS Safety Report 4808798-5 (Version None)
Quarter: 2005Q4

REPORT INFORMATION
  Report Type: 
  Country: None (occurrence: None)
  Receive Date: 20051021
  Receipt Date: 20020705
  Transmission Date: 20060501
  Serious: No
  Sender: FDA-Public Use
  Company Number: AU_020705223

PATIENT
  Age: 21 Year
  Sex: Female
  Weight: 90 kg

DRUGS (1)
  1. OLANZAPINE [Suspect]
     Indication: SCHIZOPHRENIA
     Dosage: 5 MG/IN THE EVENING
     Dates: start: 20010501

REACTIONS (4)
  - AMENORRHOEA [None]
  - MENORRHAGIA [None]
  - MENSTRUATION IRREGULAR [None]
  - POLYMENORRHOEA [None]
